FAERS Safety Report 11411360 (Version 1)
Quarter: 2015Q3

REPORT INFORMATION
  Report Type: Spontaneous
  Country: CN (occurrence: CN)
  Receive Date: 20150824
  Receipt Date: 20150824
  Transmission Date: 20151125
  Serious: Yes (Death, Hospitalization)
  Sender: FDA-Public Use
  Company Number: CN-ASTRAZENECA-2015SE81061

PATIENT
  Age: 76 Year
  Sex: Female

DRUGS (3)
  1. FELODIPINE. [Suspect]
     Active Substance: FELODIPINE
     Indication: HYPERTENSION
     Route: 048
  2. DOPAMINE HYDROCHLORIDE. [Suspect]
     Active Substance: DOPAMINE HYDROCHLORIDE
     Route: 042
  3. DOPAMINE HYDROCHLORIDE. [Suspect]
     Active Substance: DOPAMINE HYDROCHLORIDE
     Route: 042

REACTIONS (5)
  - Interventricular septum rupture [Fatal]
  - Condition aggravated [Unknown]
  - Hypotension [Unknown]
  - Overdose [Unknown]
  - Myocardial infarction [Unknown]
